FAERS Safety Report 12551966 (Version 1)
Quarter: 2016Q3

REPORT INFORMATION
  Report Type: Spontaneous
  Country: US (occurrence: None)
  Receive Date: 20160712
  Receipt Date: 20160712
  Transmission Date: 20161109
  Serious: No
  Sender: FDA-Public Use
  Company Number: None

PATIENT
  Age: 51 Year
  Sex: Female

DRUGS (7)
  1. AMITRIPTYLINE [Concomitant]
     Active Substance: AMITRIPTYLINE
  2. XANAX [Concomitant]
     Active Substance: ALPRAZOLAM
  3. SOMA [Concomitant]
     Active Substance: CARISOPRODOL
  4. PHENERGAN [Concomitant]
     Active Substance: PROMETHAZINE HYDROCHLORIDE
  5. LOPRESSOR [Concomitant]
     Active Substance: METOPROLOL TARTRATE
  6. NORCO (GENERIC) [Suspect]
     Active Substance: ACETAMINOPHEN\HYDROCODONE BITARTRATE
     Indication: BACK PAIN
     Dosage: #120 4X A DAY BY MOUTH
     Route: 048
     Dates: start: 20160401, end: 20160402
  7. NORCO (GENERIC) [Suspect]
     Active Substance: ACETAMINOPHEN\HYDROCODONE BITARTRATE
     Indication: OSTEOARTHRITIS
     Dosage: #120 4X A DAY BY MOUTH
     Route: 048
     Dates: start: 20160401, end: 20160402

REACTIONS (5)
  - Rash [None]
  - Dyspnoea [None]
  - Product substitution issue [None]
  - Throat tightness [None]
  - Drug hypersensitivity [None]

NARRATIVE: CASE EVENT DATE: 20160402
